FAERS Safety Report 14246746 (Version 2)
Quarter: 2018Q1

REPORT INFORMATION
  Report Type: Spontaneous
  Country: US (occurrence: US)
  Receive Date: 20171204
  Receipt Date: 20180301
  Transmission Date: 20180508
  Serious: No
  Sender: FDA-Public Use
  Company Number: US-PFIZER INC-2017514496

PATIENT
  Age: 61 Year
  Sex: Male

DRUGS (2)
  1. LYRICA [Suspect]
     Active Substance: PREGABALIN
     Indication: DIABETIC NEUROPATHY
     Dosage: 200 MG, 2X/DAY (1 CAPSULE)
     Route: 048
  2. LYRICA [Suspect]
     Active Substance: PREGABALIN
     Indication: HYPERGLYCAEMIA

REACTIONS (1)
  - Limb discomfort [Unknown]
